FAERS Safety Report 7477116-9 (Version None)
Quarter: 2011Q2

REPORT INFORMATION
  Report Type: 
  Country: None (occurrence: None)
  Receive Date: 20110512
  Receipt Date: 20110124
  Transmission Date: 20111010
  Serious: No
  Sender: FDA-Public Use
  Company Number: US-NOVEN-11US001659

PATIENT
  Sex: Male
  Weight: 31.746 kg

DRUGS (1)
  1. DAYTRANA [Suspect]
     Indication: ATTENTION DEFICIT/HYPERACTIVITY DISORDER
     Dosage: 15 MG, QD FOR 9 HRS
     Route: 062
     Dates: start: 20101001

REACTIONS (5)
  - APPLICATION SITE PAIN [None]
  - APPLICATION SITE PRURITUS [None]
  - MEMORY IMPAIRMENT [None]
  - DRUG DOSE OMISSION [None]
  - APPLICATION SITE ERYTHEMA [None]
